FAERS Safety Report 5275113-5 (Version None)
Quarter: 2007Q1

REPORT INFORMATION
  Report Type: 
  Country: None (occurrence: None)
  Receive Date: 20061219
  Receipt Date: 20060928
  Transmission Date: 20070707
  Serious: Yes (Other)
  Sender: FDA-Public Use
  Company Number: US-JNJFOC-20061000250

PATIENT
  Age: 33 Year
  Sex: Female

DRUGS (6)
  1. ORTHO EVRA [Suspect]
     Indication: CONTRACEPTION
     Dates: end: 20050101
  2. ORTHO EVRA [Suspect]
     Indication: MENORRHAGIA
     Dates: end: 20050101
  3. ORTHO EVRA [Suspect]
     Indication: MENSTRUATION IRREGULAR
     Dates: end: 20050101
  4. ORTHO EVRA [Suspect]
     Indication: CONTRACEPTION
     Dates: start: 20050829, end: 20051219
  5. ORTHO EVRA [Suspect]
     Indication: MENORRHAGIA
     Dates: start: 20050829, end: 20051219
  6. ORTHO EVRA [Suspect]
     Indication: MENSTRUATION IRREGULAR
     Dates: start: 20050829, end: 20051219

REACTIONS (1)
  - PULMONARY EMBOLISM [None]
